FAERS Safety Report 8575025-5 (Version None)
Quarter: 2012Q3

REPORT INFORMATION
  Report Type: 
  Country: None (occurrence: None)
  Receive Date: 20120807
  Receipt Date: 20120730
  Transmission Date: 20120928
  Serious: Yes (Other)
  Sender: FDA-Public Use
  Company Number: JP-ELI_LILLY_AND_COMPANY-JP201208000020

PATIENT
  Age: 73 Year
  Sex: Female

DRUGS (2)
  1. FORTEO [Suspect]
     Dosage: UNK
     Route: 058
     Dates: start: 20110601, end: 20111001
  2. FORTEO [Suspect]
     Dosage: UNK
     Route: 058
     Dates: start: 20120401

REACTIONS (3)
  - FRACTURE [None]
  - DRUG INEFFECTIVE [None]
  - PAIN [None]
